FAERS Safety Report 20207799 (Version 1)
Quarter: 2021Q4

REPORT INFORMATION
  Report Type: Spontaneous
  Country: JP (occurrence: JP)
  Receive Date: 20211220
  Receipt Date: 20211220
  Transmission Date: 20220303
  Serious: Yes (Life-Threatening, Other)
  Sender: FDA-Public Use
  Company Number: JP-Fresenius Kabi-FK202114211

PATIENT
  Age: 32 Year
  Sex: Female

DRUGS (6)
  1. AMIODARONE HYDROCHLORIDE [Suspect]
     Active Substance: AMIODARONE HYDROCHLORIDE
     Indication: Junctional ectopic tachycardia
     Route: 065
  2. ADENOSINE [Suspect]
     Active Substance: ADENOSINE
     Indication: Junctional ectopic tachycardia
     Route: 042
  3. VERAPAMIL [Suspect]
     Active Substance: VERAPAMIL HYDROCHLORIDE
     Indication: Junctional ectopic tachycardia
     Route: 065
  4. LANDIOLOL [Suspect]
     Active Substance: LANDIOLOL
     Indication: Junctional ectopic tachycardia
     Route: 065
  5. BISOPROLOL [Suspect]
     Active Substance: BISOPROLOL
     Indication: Junctional ectopic tachycardia
     Route: 065
  6. PILSICAINIDE [Concomitant]
     Active Substance: PILSICAINIDE
     Indication: Junctional ectopic tachycardia
     Route: 065

REACTIONS (1)
  - Ventricular fibrillation [Recovered/Resolved]
